FAERS Safety Report 8401564-3 (Version None)
Quarter: 2012Q2

REPORT INFORMATION
  Report Type: 
  Country: None (occurrence: None)
  Receive Date: 20120601
  Receipt Date: 20120525
  Transmission Date: 20120825
  Serious: Yes (Other)
  Sender: FDA-Public Use
  Company Number: PHHY2012IN045188

PATIENT
  Age: 6 Year
  Sex: Female

DRUGS (3)
  1. MEROPENEM [Suspect]
     Indication: MYALGIA
     Dosage: 60 MG/KG/DAY
     Route: 042
  2. MEROPENEM [Suspect]
     Indication: NASOPHARYNGITIS
  3. MEROPENEM [Suspect]
     Indication: COUGH

REACTIONS (2)
  - METABOLIC ALKALOSIS [None]
  - HYPOKALAEMIA [None]
